FAERS Safety Report 8253117-8 (Version None)
Quarter: 2012Q2

REPORT INFORMATION
  Report Type: 
  Country: None (occurrence: None)
  Receive Date: 20120402
  Receipt Date: 20120302
  Transmission Date: 20120825
  Serious: No
  Sender: FDA-Public Use
  Company Number: US-AMGEN-USASP2012014267

PATIENT
  Age: 62 Year
  Sex: Male

DRUGS (3)
  1. PREDNISONE TAB [Concomitant]
  2. ENBREL [Suspect]
     Indication: RHEUMATOID ARTHRITIS
     Dosage: 50 MG, Q2WK
     Dates: start: 20040701
  3. VITAMIN B6 [Concomitant]

REACTIONS (5)
  - ANXIETY [None]
  - RASH ERYTHEMATOUS [None]
  - FEELING ABNORMAL [None]
  - SERUM FERRITIN INCREASED [None]
  - HEPATIC ENZYME INCREASED [None]
